FAERS Safety Report 10340693 (Version 1)
Quarter: 2014Q3

REPORT INFORMATION
  Report Type: Spontaneous
  Country: JP (occurrence: JP)
  Receive Date: 20140724
  Receipt Date: 20140724
  Transmission Date: 20150326
  Serious: No
  Sender: FDA-Public Use
  Company Number: PHHY2010JP095764

PATIENT
  Age: 77 Year
  Sex: Male

DRUGS (5)
  1. GLIVEC [Suspect]
     Active Substance: IMATINIB MESYLATE
     Indication: CHRONIC MYELOID LEUKAEMIA
     Dosage: 300 MG, DAILY
     Dates: start: 20101201
  2. TASIGNA [Suspect]
     Active Substance: NILOTINIB
     Dosage: 600 MG, UNK
     Dates: start: 201108
  3. GLIVEC [Suspect]
     Active Substance: IMATINIB MESYLATE
     Dosage: 400 MG, UNK
  4. TASIGNA [Suspect]
     Active Substance: NILOTINIB
     Dosage: 400 MG, UNK
  5. SPRYCEL [Suspect]
     Active Substance: DASATINIB

REACTIONS (2)
  - Interstitial lung disease [Unknown]
  - Platelet count increased [Unknown]

NARRATIVE: CASE EVENT DATE: 20101201
